FAERS Safety Report 24156600 (Version 1)
Quarter: 2024Q3

REPORT INFORMATION
  Report Type: Spontaneous
  Country: US (occurrence: None)
  Receive Date: 20240730
  Receipt Date: 20240730
  Transmission Date: 20241016
  Serious: Yes (Other)
  Sender: Public
  Company Number: None

PATIENT
  Sex: Female
  Weight: 63 kg

DRUGS (14)
  1. DIETARY SUPPLEMENT [Suspect]
     Active Substance: DIETARY SUPPLEMENT
     Indication: Back disorder
  2. DIETARY SUPPLEMENT [Suspect]
     Active Substance: DIETARY SUPPLEMENT
     Indication: Asthenia
  3. DIETARY SUPPLEMENT [Suspect]
     Active Substance: DIETARY SUPPLEMENT
     Indication: Asthenia
  4. DIETARY SUPPLEMENT [Suspect]
     Active Substance: DIETARY SUPPLEMENT
     Indication: Asthenia
  5. DIETARY SUPPLEMENT [Suspect]
     Active Substance: DIETARY SUPPLEMENT
     Indication: Asthenia
  6. DICLOFENAC [Suspect]
     Active Substance: DICLOFENAC
  7. OMEPRAZOLE [Suspect]
     Active Substance: OMEPRAZOLE
  8. ROSUVASTATIN [Concomitant]
     Active Substance: ROSUVASTATIN\ROSUVASTATIN CALCIUM
  9. TRAZODONE [Concomitant]
     Active Substance: TRAZODONE HYDROCHLORIDE
  10. VITAMIN D [Concomitant]
     Active Substance: VITAMIN D NOS
  11. APPLE CIDER VINEGAR [Concomitant]
     Active Substance: APPLE CIDER VINEGAR
  12. COENZYME Q10 [Concomitant]
     Active Substance: DIETARY SUPPLEMENT\UBIDECARENONE
  13. BIOTIN [Concomitant]
     Active Substance: BIOTIN
  14. ASPIRIN [Concomitant]
     Active Substance: ASPIRIN

REACTIONS (7)
  - Cardiac murmur [None]
  - Cardiac valve disease [None]
  - Neck mass [None]
  - Hepatic enzyme increased [None]
  - Skin discolouration [None]
  - Swelling face [None]
  - Recalled product administered [None]
